FAERS Safety Report 25814062 (Version 1)
Quarter: 2025Q3

REPORT INFORMATION
  Report Type: Spontaneous
  Country: ID (occurrence: ID)
  Receive Date: 20250917
  Receipt Date: 20250917
  Transmission Date: 20251021
  Serious: Yes (Hospitalization)
  Sender: NOVARTIS
  Company Number: ID-002147023-NVSC2025ID143246

PATIENT
  Age: 35 Year
  Sex: Female

DRUGS (1)
  1. ZOLEDRONIC ACID [Suspect]
     Active Substance: ZOLEDRONIC ACID
     Indication: Metastases to bone
     Route: 065
     Dates: start: 2020

REACTIONS (10)
  - Atrioventricular block second degree [Recovering/Resolving]
  - Dyspnoea [Recovering/Resolving]
  - Loss of consciousness [Recovering/Resolving]
  - Ventricular tachycardia [Recovering/Resolving]
  - Hypophagia [Unknown]
  - Fatigue [Unknown]
  - Cardiac arrest [Recovering/Resolving]
  - Hypokalaemia [Recovering/Resolving]
  - Nausea [Unknown]
  - Vomiting [Unknown]
